FAERS Safety Report 5139280-6 (Version None)
Quarter: 2006Q4

REPORT INFORMATION
  Report Type: 
  Country: None (occurrence: None)
  Receive Date: 20061024
  Receipt Date: 20061011
  Transmission Date: 20070319
  Serious: Yes (Death, Hospitalization, Other)
  Sender: FDA-Public Use
  Company Number: 2006BI010640

PATIENT
  Age: 53 Year
  Sex: Male

DRUGS (4)
  1. AVONEX [Suspect]
     Indication: MULTIPLE SCLEROSIS
     Dosage: 30 UG;QW;IM
     Route: 030
     Dates: start: 20030101
  2. NPH INSULIN [Concomitant]
  3. COUMADIN [Concomitant]
  4. ANTIHYPERTENSIVE [Concomitant]

REACTIONS (4)
  - ANGIOPATHY [None]
  - RENAL FAILURE [None]
  - SEPSIS [None]
  - THROMBOPHLEBITIS [None]
